FAERS Safety Report 5632552-8 (Version None)
Quarter: 2008Q1

REPORT INFORMATION
  Report Type: 
  Country: None (occurrence: None)
  Receive Date: 20080220
  Receipt Date: 20080208
  Transmission Date: 20080703
  Serious: Yes (Hospitalization, Other)
  Sender: FDA-Public Use
  Company Number: US-PFIZER INC-2007016421

PATIENT
  Sex: Female
  Weight: 49.9 kg

DRUGS (1)
  1. CHANTIX [Suspect]
     Indication: EX-SMOKER

REACTIONS (6)
  - COLITIS [None]
  - DEHYDRATION [None]
  - FEELING ABNORMAL [None]
  - NAUSEA [None]
  - PNEUMONIA [None]
  - VOMITING [None]
